FAERS Safety Report 26175646 (Version 1)
Quarter: 2025Q4

REPORT INFORMATION
  Report Type: Report from Study
  Country: EU (occurrence: None)
  Receive Date: 20251218
  Receipt Date: 20251218
  Transmission Date: 20260117
  Serious: Yes (Other)
  Sender: UCB
  Company Number: EU-UCBSA-2025057853

PATIENT
  Age: 4 Year

DRUGS (3)
  1. DOXECITINE\DOXRIBTIMINE [Suspect]
     Active Substance: DOXECITINE\DOXRIBTIMINE
     Indication: Mitochondrial DNA depletion
     Dosage: 400 MG/KG/DAY, THREE TIMES PER DAY
     Route: 061
  2. DOXECITINE\DOXRIBTIMINE [Suspect]
     Active Substance: DOXECITINE\DOXRIBTIMINE
     Dosage: 400 MG/KG/DAY
     Route: 061
  3. INFLUENZA VIRUS VACCINE [Concomitant]
     Active Substance: INFLUENZA VIRUS VACCINE
     Indication: Product used for unknown indication
     Dosage: UNK UNK, ONE TIME DOSE

REACTIONS (2)
  - Hepatic enzyme increased [Recovered/Resolved]
  - Cytomegalovirus hepatitis [Recovered/Resolved]
